FAERS Safety Report 5220769-6 (Version None)
Quarter: 2007Q1

REPORT INFORMATION
  Report Type: 
  Country: None (occurrence: None)
  Receive Date: 20070126
  Receipt Date: 20070118
  Transmission Date: 20070707
  Serious: Yes (Hospitalization)
  Sender: FDA-Public Use
  Company Number: FR-ROCHE-479291

PATIENT
  Age: 58 Year
  Sex: Male

DRUGS (7)
  1. RIVOTRIL [Suspect]
     Indication: DRUG USE FOR UNKNOWN INDICATION
     Route: 048
     Dates: start: 20061114, end: 20061127
  2. NEXIUM [Suspect]
     Indication: DRUG USE FOR UNKNOWN INDICATION
     Route: 048
     Dates: start: 20061104, end: 20061127
  3. PIRILENE [Suspect]
     Indication: DRUG USE FOR UNKNOWN INDICATION
     Route: 048
     Dates: start: 20061022, end: 20061027
  4. TRAMADOL HCL [Suspect]
     Indication: DRUG USE FOR UNKNOWN INDICATION
     Route: 048
     Dates: start: 20061111, end: 20061128
  5. RIMIFON [Concomitant]
     Dosage: ON 05 NOVEMBER 2006 THE DOSAGE WAS 250 MG.
     Route: 048
     Dates: start: 20061022, end: 20061201
  6. RIFADIN [Concomitant]
     Dosage: DRUG WAS STOPPED ON 01 DECEMBER 2006 AND REINTRODUCED ON 10 DECEMBER 2006 IN THE MORNING WITH 200 M+
     Route: 048
     Dates: start: 20061022
  7. MYAMBUTOL [Concomitant]
     Dates: start: 20061022

REACTIONS (3)
  - BLOOD BILIRUBIN INCREASED [None]
  - GAMMA-GLUTAMYLTRANSFERASE INCREASED [None]
  - HEPATIC ENZYME INCREASED [None]
